FAERS Safety Report 5699661-9 (Version None)
Quarter: 2008Q2

REPORT INFORMATION
  Report Type: 
  Country: None (occurrence: None)
  Receive Date: 20080410
  Receipt Date: 20080407
  Transmission Date: 20081010
  Serious: Yes (Other)
  Sender: FDA-Public Use
  Company Number: PHNU2008DE00844

PATIENT
  Age: 42 Year
  Sex: Female

DRUGS (1)
  1. ESTALIS SEQUI [Suspect]
     Indication: MENOPAUSAL SYMPTOMS
     Route: 062
     Dates: start: 20071001

REACTIONS (2)
  - ANXIETY [None]
  - PANIC ATTACK [None]
